FAERS Safety Report 5973142-7 (Version None)
Quarter: 2008Q4

REPORT INFORMATION
  Report Type: 
  Country: None (occurrence: None)
  Receive Date: 20081201
  Receipt Date: 20081119
  Transmission Date: 20090506
  Serious: Yes (Hospitalization)
  Sender: FDA-Public Use
  Company Number: DK-ASTRAZENECA-2008SE04397

PATIENT
  Age: 7 Year
  Sex: Male
  Weight: 35 kg

DRUGS (7)
  1. SPIROCORT TURBUHALER [Suspect]
     Indication: ASTHMA
     Route: 055
     Dates: start: 20040901
  2. SPIROCORT TURBUHALER [Suspect]
     Route: 055
     Dates: start: 20050101
  3. SPIROCORT TURBUHALER [Suspect]
     Route: 055
  4. SPIROCORT TURBUHALER [Suspect]
     Route: 055
     Dates: end: 20070101
  5. BRICANYL [Concomitant]
     Indication: ASTHMA
     Dosage: 0.25 MG/DOSE
     Route: 055
     Dates: start: 20040401
  6. SINGULAIR [Concomitant]
     Indication: ASTHMA
     Dosage: 5 MILLIGRAM(S)
     Route: 048
     Dates: start: 20070603
  7. MIGEA [Concomitant]
     Indication: MIGRAINE

REACTIONS (1)
  - GROWTH RETARDATION [None]
